FAERS Safety Report 10040741 (Version 1)
Quarter: 2014Q1

REPORT INFORMATION
  Report Type: Spontaneous
  Country: US (occurrence: US)
  Receive Date: 20140327
  Receipt Date: 20140327
  Transmission Date: 20141002
  Serious: Yes (Hospitalization)
  Sender: FDA-Public Use
  Company Number: US-AMGEN-USASP2014019857

PATIENT
  Age: 75 Year
  Sex: Male

DRUGS (2)
  1. NEUPOGEN [Suspect]
     Indication: PRODUCT USED FOR UNKNOWN INDICATION
     Dosage: 960 MUG, ONCE DAILY X 10 DOSES
     Route: 065
     Dates: start: 20140309
  2. CYTOXAN [Concomitant]
     Indication: PLASMA CELL MYELOMA
     Dosage: UNK
     Dates: start: 20140307

REACTIONS (3)
  - White blood cell disorder [Unknown]
  - Neutrophil count abnormal [Unknown]
  - Therapeutic response decreased [Unknown]
